FAERS Safety Report 8811880 (Version 3)
Quarter: 2014Q2

REPORT INFORMATION
  Report Type: Report from Study
  Country: US (occurrence: US)
  Receive Date: 20120927
  Receipt Date: 20140414
  Transmission Date: 20141212
  Serious: Yes (Death)
  Sender: FDA-Public Use
  Company Number: US-BAXTER-2012BAX017941

PATIENT
  Sex: Male
  Weight: 87 kg

DRUGS (2)
  1. GAMMAGARD LIQUID [Suspect]
     Indication: SEPSIS
     Route: 042
     Dates: start: 2007, end: 20100901
  2. GAMMAGARD LIQUID [Suspect]
     Indication: OFF LABEL USE

REACTIONS (1)
  - Cardiac failure chronic [Fatal]
